FAERS Safety Report 4706355-2 (Version None)
Quarter: 2005Q2

REPORT INFORMATION
  Report Type: 
  Country: None (occurrence: None)
  Receive Date: 20050113
  Receipt Date: 20050113
  Transmission Date: 20051028
  Serious: No
  Sender: FDA-Public Use
  Company Number: None

PATIENT
  Sex: Female

DRUGS (2)
  1. NIFEDIPINE [Suspect]
     Indication: CORONARY ARTERY ATHEROSCLEROSIS
     Dosage: 60MG ONE DAILY
     Dates: start: 20040814, end: 20040816
  2. NIFEDIPINE [Suspect]
     Indication: HYPERTENSION
     Dosage: 60MG ONE DAILY
     Dates: start: 20040814, end: 20040816

REACTIONS (2)
  - NAUSEA [None]
  - VOMITING [None]
